FAERS Safety Report 17826393 (Version 8)
Quarter: 2025Q3

REPORT INFORMATION
  Report Type: Spontaneous
  Country: EU (occurrence: EU)
  Receive Date: 20200527
  Receipt Date: 20250919
  Transmission Date: 20251020
  Serious: Yes (Hospitalization, Other)
  Sender: AUROBINDO
  Company Number: EU-PHARMATHEN-GPV2020PHT044865

PATIENT
  Age: 65 Year
  Sex: Male

DRUGS (21)
  1. PREDNISONE [Suspect]
     Active Substance: PREDNISONE
     Indication: Heart transplant rejection
     Dosage: 12.5 MILLIGRAM, ONCE A DAY
     Route: 065
     Dates: start: 2017
  2. PREDNISONE [Suspect]
     Active Substance: PREDNISONE
     Indication: Immunosuppressant drug therapy
     Dosage: 12.5 MILLIGRAM, ONCE A DAY(12.5 MILLIGRAM, QD )
     Route: 065
  3. VORICONAZOLE [Suspect]
     Active Substance: VORICONAZOLE
     Indication: Aspergillus infection
     Dosage: 4 MILLIGRAM/KILOGRAM, EVERY OTHER DAY
     Route: 042
  4. VORICONAZOLE [Suspect]
     Active Substance: VORICONAZOLE
     Indication: Osteomyelitis fungal
     Dosage: UNK UNK, ONCE A DAY (BID)
     Route: 048
  5. VORICONAZOLE [Suspect]
     Active Substance: VORICONAZOLE
     Indication: Bronchopulmonary aspergillosis
     Dosage: 6 MILLIGRAM/KILOGRAM, EVERY OTHER DAY
     Route: 042
  6. VORICONAZOLE [Suspect]
     Active Substance: VORICONAZOLE
     Indication: Disseminated aspergillosis
     Dosage: 4 MILLIGRAM/KILOGRAM, ONCE A DAY(4 MILLIGRAM/KILOGRAM, BID )
     Route: 042
  7. VORICONAZOLE [Suspect]
     Active Substance: VORICONAZOLE
     Indication: Mediastinitis
     Dosage: 6 MILLIGRAM/KILOGRAM, TWO TIMES A DAY, ON FIRST DAY
     Route: 042
  8. VORICONAZOLE [Suspect]
     Active Substance: VORICONAZOLE
     Dosage: 6 MILLIGRAM, TWO TIMES A DAY((6 MG/KG/12 H THE FIRST DAY THEN 4 MG/KG/12 H FOR 7 DAYS )
     Route: 042
  9. VORICONAZOLE [Suspect]
     Active Substance: VORICONAZOLE
     Dosage: 8 MILLIGRAM/KILOGRAM, ONCE A DAY(8 MILLIGRAM/KILOGRAM, QD (4 MG/KG, BID 12 H)
     Route: 065
  10. VORICONAZOLE [Suspect]
     Active Substance: VORICONAZOLE
     Dosage: 12 MILLIGRAM/KILOGRAM, ONCE A DAY(6 MILLIGRAM/KILOGRAM, BID )
     Route: 042
  11. VORICONAZOLE [Suspect]
     Active Substance: VORICONAZOLE
     Dosage: 12 MILLIGRAM/KILOGRAM, ONCE A DAY(12 MILLIGRAM/KILOGRAM, QD (6 MG/KG, BID 12 H, ON FIRST DAY)
     Route: 065
  12. MYCOPHENOLATE MOFETIL [Suspect]
     Active Substance: MYCOPHENOLATE MOFETIL
     Indication: Heart transplant rejection
     Dosage: UNK, ONCE A DAY (BID (500 BID)
     Route: 065
  13. MYCOPHENOLATE MOFETIL [Suspect]
     Active Substance: MYCOPHENOLATE MOFETIL
     Indication: Immunosuppressant drug therapy
     Dosage: 1000 MILLIGRAM, ONCE A DAY (500 MG TWO TIMES A DAY)
     Route: 065
     Dates: start: 2017
  14. TACROLIMUS [Suspect]
     Active Substance: TACROLIMUS
     Indication: Heart transplant rejection
     Route: 065
     Dates: start: 2017
  15. TACROLIMUS [Suspect]
     Active Substance: TACROLIMUS
     Indication: Immunosuppressant drug therapy
     Route: 065
     Dates: start: 2017
  16. PIPERACILLIN SODIUM\TAZOBACTAM SODIUM [Concomitant]
     Active Substance: PIPERACILLIN SODIUM\TAZOBACTAM SODIUM
     Indication: Drug therapy
     Dosage: 600 MILLIGRAM/KILOGRAM, ONCE A DAY (200 MILLIGRAM/KILOGRAM, TID)
     Route: 065
  17. ISAVUCONAZOLE [Concomitant]
     Active Substance: ISAVUCONAZOLE
     Indication: Disseminated aspergillosis
     Route: 042
  18. ISAVUCONAZOLE [Concomitant]
     Active Substance: ISAVUCONAZOLE
     Indication: Osteomyelitis fungal
     Dosage: 200 MILLIGRAM, ONCE A DAY
     Route: 065
  19. ISAVUCONAZOLE [Concomitant]
     Active Substance: ISAVUCONAZOLE
     Indication: Mediastinitis
  20. DAPTOMYCIN [Concomitant]
     Active Substance: DAPTOMYCIN
     Indication: Drug therapy
     Dosage: 2800 MILLIGRAM, ONCE A DAY (11.5 MG/KG)(700 MILLIGRAM, QID)
     Route: 065
  21. AMPHOTERICIN B [Concomitant]
     Active Substance: AMPHOTERICIN B
     Indication: Disseminated aspergillosis
     Route: 065

REACTIONS (16)
  - Osteomyelitis fungal [Recovered/Resolved]
  - Disseminated aspergillosis [Recovered/Resolved]
  - Soft tissue infection [Recovered/Resolved]
  - Mediastinitis [Recovered/Resolved]
  - Peripheral sensory neuropathy [Recovered/Resolved]
  - Photosensitivity reaction [Recovered/Resolved]
  - Aspergillus infection [Recovered/Resolved]
  - Skin infection [Recovered/Resolved]
  - Paraesthesia [Recovered/Resolved]
  - Acute kidney injury [Recovered/Resolved]
  - Neurotoxicity [Recovered/Resolved]
  - Skin toxicity [Recovered/Resolved]
  - Neuropathy peripheral [Recovered/Resolved]
  - Peripheral sensorimotor neuropathy [Recovered/Resolved]
  - Nervous system disorder [Recovered/Resolved]
  - Off label use [Unknown]
